FAERS Safety Report 4310543-7 (Version None)
Quarter: 2004Q1

REPORT INFORMATION
  Report Type: 
  Country: None (occurrence: None)
  Receive Date: 20040303
  Receipt Date: 20031107
  Transmission Date: 20041129
  Serious: Yes (Other)
  Sender: FDA-Public Use
  Company Number: BE-GLAXOSMITHKLINE-B0314544A

PATIENT
  Age: 54 Year
  Sex: Male
  Weight: 70 kg

DRUGS (1)
  1. ZYBAN [Suspect]
     Dates: start: 20031014, end: 20031104

REACTIONS (8)
  - AGITATION [None]
  - ANXIETY [None]
  - HEADACHE [None]
  - NIGHTMARE [None]
  - PANIC ATTACK [None]
  - PSYCHOTIC DISORDER [None]
  - SLEEP DISORDER [None]
  - SYNCOPE [None]
